FAERS Safety Report 5702166-X (Version None)
Quarter: 2008Q2

REPORT INFORMATION
  Report Type: 
  Country: None (occurrence: None)
  Receive Date: 20080411
  Receipt Date: 20080407
  Transmission Date: 20081010
  Serious: Yes (Life-Threatening, Hospitalization, Disabling)
  Sender: FDA-Public Use
  Company Number: PHRM2007FR02744

PATIENT
  Age: 55 Year
  Sex: Male

DRUGS (4)
  1. STALEVO 100 [Suspect]
     Indication: PARKINSON'S DISEASE
     Dosage: UNK, UNK
     Route: 048
     Dates: end: 20050430
  2. STALEVO 100 [Suspect]
     Dosage: 200 TO 400 DF, ONCE/SINGLE
     Route: 048
     Dates: start: 20050501, end: 20050501
  3. EFFEXOR [Suspect]
     Indication: DEPRESSION
     Dosage: SOME BOXES, ONCE/SINGLE
     Route: 048
     Dates: start: 20050501, end: 20050501
  4. EFFEXOR [Suspect]
     Dates: end: 20050430

REACTIONS (12)
  - AGITATION [None]
  - APHASIA [None]
  - ARTERIAL INJURY [None]
  - CHROMATURIA [None]
  - COMA [None]
  - DYSKINESIA [None]
  - HEMIPLEGIA [None]
  - INTENTIONAL OVERDOSE [None]
  - RENAL FAILURE [None]
  - SKIN DISCOLOURATION [None]
  - SOMNOLENCE [None]
  - SUICIDE ATTEMPT [None]
